FAERS Safety Report 8092974-5 (Version None)
Quarter: 2012Q1

REPORT INFORMATION
  Report Type: 
  Country: None (occurrence: None)
  Receive Date: 20120131
  Receipt Date: 20120117
  Transmission Date: 20120608
  Serious: Yes (Hospitalization, Other)
  Sender: FDA-Public Use
  Company Number: US-ACTELION-A-US2011-53572

PATIENT

DRUGS (13)
  1. TYLENOL W/ CODEINE NO. 3 [Concomitant]
  2. TRACLEER [Suspect]
     Indication: PULMONARY ARTERIAL HYPERTENSION
     Dosage: 62.5 MG, BID
     Route: 048
     Dates: start: 20110513
  3. ESTRADIOL [Concomitant]
  4. PAXIL [Concomitant]
  5. PRILOSEC [Concomitant]
  6. FAMOTIDINE [Concomitant]
  7. COLACE [Concomitant]
  8. SPIRONOLACTONE [Concomitant]
  9. REVATIO [Concomitant]
  10. VICODIN [Concomitant]
  11. ENALAPRIL [Concomitant]
  12. PROMETHAZINE [Concomitant]
  13. INSULIN [Concomitant]

REACTIONS (7)
  - CHEST PAIN [None]
  - VOMITING [None]
  - GALLBLADDER DISORDER [None]
  - CHOLELITHIASIS [None]
  - ABDOMINAL PAIN [None]
  - FATIGUE [None]
  - NAUSEA [None]
